FAERS Safety Report 9337392 (Version 1)
Quarter: 2013Q2

REPORT INFORMATION
  Report Type: Report from Study
  Country: US (occurrence: US)
  Receive Date: 20130607
  Receipt Date: 20130607
  Transmission Date: 20140414
  Serious: Yes (Hospitalization, Other)
  Sender: FDA-Public Use
  Company Number: US-ABBOTT-13P-163-1097195-00

PATIENT
  Age: 64 Year
  Sex: Male

DRUGS (5)
  1. HUMIRA [Suspect]
     Indication: RHEUMATOID ARTHRITIS
     Dates: start: 20130506
  2. MOBIC [Concomitant]
     Indication: PAIN
  3. ALLOPURINOL [Concomitant]
     Indication: GOUT
  4. GABAPENTIN [Concomitant]
     Indication: NEUROPATHY PERIPHERAL
  5. ISOSORBIDE [Concomitant]
     Indication: ATRIAL FIBRILLATION

REACTIONS (4)
  - Hip fracture [Recovering/Resolving]
  - Local swelling [Recovering/Resolving]
  - Injection site erythema [Recovering/Resolving]
  - Hip arthroplasty [Unknown]
